FAERS Safety Report 5630950-X (Version None)
Quarter: 2008Q1

REPORT INFORMATION
  Report Type: 
  Country: None (occurrence: None)
  Receive Date: 20080219
  Receipt Date: 20080207
  Transmission Date: 20080703
  Serious: Yes (Other)
  Sender: FDA-Public Use
  Company Number: US-TEVA-167453USA

PATIENT
  Sex: Male

DRUGS (7)
  1. CLOZAPINE [Suspect]
     Indication: SCHIZOPHRENIA, PARANOID TYPE
     Route: 048
     Dates: start: 20070201, end: 20080206
  2. AZITHROMYCIN [Suspect]
     Indication: VIRAL INFECTION
     Route: 048
     Dates: start: 20080204
  3. AZITHROMYCIN [Suspect]
     Indication: BRONCHITIS
  4. VALPROATE SODIUM [Concomitant]
  5. LEVOTHYROXINE SODIUM [Concomitant]
  6. HALOPERIDOL [Concomitant]
     Dosage: PRN
  7. HALOPERIDOL DECANOATE [Concomitant]
     Dosage: Q MONTH

REACTIONS (3)
  - ANTIPSYCHOTIC DRUG LEVEL INCREASED [None]
  - DRUG INTERACTION [None]
  - GRANULOCYTOPENIA [None]
